FAERS Safety Report 5701648-4 (Version None)
Quarter: 2008Q2

REPORT INFORMATION
  Report Type: 
  Country: None (occurrence: None)
  Receive Date: 20080409
  Receipt Date: 20080409
  Transmission Date: 20081010
  Serious: Yes (Death, Life-Threatening, Hospitalization)
  Sender: FDA-Public Use
  Company Number: None

PATIENT
  Age: 29 Year
  Sex: Male
  Weight: 63.5036 kg

DRUGS (24)
  1. TIGECYCLINE 50MG WYETH [Suspect]
     Indication: ABSCESS
     Dosage: 50MG Q12H IV
     Route: 042
     Dates: start: 20070406, end: 20070420
  2. TIGECYCLINE 50MG WYETH [Suspect]
     Indication: WOUND
     Dosage: 50MG Q12H IV
     Route: 042
     Dates: start: 20070406, end: 20070420
  3. VANCOMYCIN [Concomitant]
  4. AZATHIAPRINE [Concomitant]
  5. ERYTHROPOETIN [Concomitant]
  6. MEGESTEROL [Concomitant]
  7. SILVASORB GEL [Concomitant]
  8. PROMETHAZINE [Concomitant]
  9. FUROSEMIDE [Concomitant]
  10. NEORAL [Concomitant]
  11. VANGANCICLOVIR [Concomitant]
  12. METOPROLOL TARTRATE [Concomitant]
  13. URSODIOL [Concomitant]
  14. ULTRASE MT20 [Concomitant]
  15. ACETAMINOPHEN W/ CODEINE [Concomitant]
  16. ESOMEPRAZOLE [Concomitant]
  17. NIFEREX [Concomitant]
  18. FOLIC ACID [Concomitant]
  19. ASCORBIC ACID [Concomitant]
  20. MAGNESIUM OXIDE [Concomitant]
  21. VITAMIN A [Concomitant]
  22. ADEKS [Concomitant]
  23. VITAMIN D [Concomitant]
  24. CALCIUM [Concomitant]

REACTIONS (11)
  - BIOPSY LIVER ABNORMAL [None]
  - CHOLESTASIS [None]
  - DISSEMINATED INTRAVASCULAR COAGULATION [None]
  - GASTROOESOPHAGEAL REFLUX DISEASE [None]
  - HAEMATEMESIS [None]
  - HAEMOSTASIS [None]
  - HEPATIC FIBROSIS [None]
  - HEPATOTOXICITY [None]
  - INTERNATIONAL NORMALISED RATIO INCREASED [None]
  - PLEURAL EFFUSION [None]
  - RENAL FAILURE ACUTE [None]
